FAERS Safety Report 8244755-7 (Version None)
Quarter: 2012Q1

REPORT INFORMATION
  Report Type: 
  Country: None (occurrence: None)
  Receive Date: 20120329
  Receipt Date: 20110322
  Transmission Date: 20120608
  Serious: Yes (Other)
  Sender: FDA-Public Use
  Company Number: US-MYLANLABS-2011S1005954

PATIENT
  Age: 31 Year
  Sex: Female

DRUGS (1)
  1. FENTANYL-100 [Suspect]
     Indication: INTERVERTEBRAL DISC DEGENERATION
     Dosage: CHANGED Q72H.
     Route: 062
     Dates: start: 20110318

REACTIONS (2)
  - DRUG INEFFECTIVE [None]
  - PAIN [None]
